FAERS Safety Report 15540648 (Version 1)
Quarter: 2018Q4

REPORT INFORMATION
  Report Type: Spontaneous
  Country: FR (occurrence: FR)
  Receive Date: 20181023
  Receipt Date: 20181023
  Transmission Date: 20190205
  Serious: Yes (Death, Life-Threatening, Hospitalization)
  Sender: FDA-Public Use
  Company Number: FR-ACCORD-073684

PATIENT
  Age: 55 Year
  Sex: Female
  Weight: 50 kg

DRUGS (2)
  1. MITOMYCINE [Suspect]
     Active Substance: MITOMYCIN
     Indication: OVARIAN CANCER STAGE III
     Route: 041
     Dates: start: 2017, end: 201709
  2. CYCLOPHOSPHAMIDE/CYCLOPHOSPHAMIDE MONOHYDRATE [Concomitant]
     Indication: OVARIAN CANCER STAGE III
     Route: 041

REACTIONS (3)
  - Pulmonary veno-occlusive disease [Fatal]
  - Respiratory distress [Fatal]
  - Dyspnoea exertional [Not Recovered/Not Resolved]

NARRATIVE: CASE EVENT DATE: 201710
